FAERS Safety Report 8925452 (Version 3)
Quarter: 2013Q1

REPORT INFORMATION
  Report Type: Spontaneous
  Country: FR (occurrence: FR)
  Receive Date: 20121126
  Receipt Date: 20130312
  Transmission Date: 20140127
  Serious: Yes (Other)
  Sender: FDA-Public Use
  Company Number: FR-VERTEX PHARMACEUTICAL INC.-2012-025091

PATIENT
  Age: 58 Year
  Sex: Female

DRUGS (12)
  1. INCIVO [Suspect]
     Indication: HEPATITIS C
     Dosage: DOSAGE FORM: TABLET
     Route: 048
     Dates: start: 20121018, end: 20121026
  2. PEGASYS [Suspect]
     Indication: HEPATITIS C
     Dosage: DOSAGE FORM: UNSPECIFIED
     Route: 058
     Dates: start: 20121018, end: 20121026
  3. COPEGUS [Suspect]
     Indication: HEPATITIS C
     Dosage: DOSAGE FORM: UNSPECIFIED
     Route: 048
     Dates: start: 20121018, end: 20121026
  4. PROPRANOLOL [Concomitant]
     Dosage: DOSAGE FORM: UNKNOWN
     Route: 065
  5. TRAMADOL [Concomitant]
     Dosage: DOSAGE FORM: UNKNOWN
     Route: 065
  6. SPIRONOLACTONE [Concomitant]
     Dosage: DOSAGE FORM: UNKNOWN
     Route: 065
  7. LAMALINE [Concomitant]
     Dosage: DOSAGE FORM: UNKNOWN
  8. PARACETAMOL [Concomitant]
  9. LYRICA [Concomitant]
     Dosage: DOSAGE FORM: UNKNOWN
     Route: 065
  10. BACLOFENE [Concomitant]
     Indication: ALCOHOL WITHDRAWAL SYNDROME
     Dosage: 20 MG, QD
  11. BACLOFENE [Concomitant]
     Dosage: DOSAGE FORM: UNKNOWN
     Route: 065
  12. SEROPLEX [Concomitant]
     Dosage: DOSAGE FORM: COATED TABLET
     Route: 048

REACTIONS (1)
  - Renal failure acute [Recovered/Resolved]
